FAERS Safety Report 25042427 (Version 1)
Quarter: 2025Q1

REPORT INFORMATION
  Report Type: Spontaneous
  Country: US (occurrence: None)
  Receive Date: 20250305
  Receipt Date: 20250305
  Transmission Date: 20250409
  Serious: Yes (Disabling)
  Sender: FDA-CTU
  Company Number: None

PATIENT
  Age: 43 Year
  Sex: Female
  Weight: 92.25 kg

DRUGS (9)
  1. TRINTELLIX [Suspect]
     Active Substance: VORTIOXETINE HYDROBROMIDE
     Indication: Depression
     Dosage: 7 TABLET(S) DAILY ORAL
     Route: 048
     Dates: start: 20250226, end: 20250304
  2. TRINTELLIX [Suspect]
     Active Substance: VORTIOXETINE HYDROBROMIDE
     Indication: Anxiety
  3. SYNTHROID [Concomitant]
     Active Substance: LEVOTHYROXINE SODIUM
  4. ZYRTEC [Concomitant]
     Active Substance: CETIRIZINE HYDROCHLORIDE
  5. Sundown Naturals vitamin D3 [Concomitant]
  6. Nature Made B-complex [Concomitant]
  7. Feosol iron (iron) [Concomitant]
  8. Qunol CoQ10 [Concomitant]
  9. Nature^s Bounty Probiotic 10 [Concomitant]

REACTIONS (7)
  - Impulsive behaviour [None]
  - Obsessive-compulsive disorder [None]
  - Binge eating [None]
  - Compulsive shopping [None]
  - Pruritus [None]
  - Histamine level increased [None]
  - Hypersomnia [None]

NARRATIVE: CASE EVENT DATE: 20250304
